FAERS Safety Report 4627563-5 (Version None)
Quarter: 2005Q2

REPORT INFORMATION
  Report Type: 
  Country: None (occurrence: None)
  Receive Date: 20050405
  Receipt Date: 20050325
  Transmission Date: 20051028
  Serious: Yes (Other)
  Sender: FDA-Public Use
  Company Number: 141673USA

PATIENT
  Age: 44 Year
  Sex: Male

DRUGS (1)
  1. URSODIOL [Suspect]
     Dosage: 500 MILLIGRAM ORAL
     Route: 048
     Dates: start: 20050101

REACTIONS (2)
  - HEPATIC FAILURE [None]
  - OVERDOSE [None]
